FAERS Safety Report 10154505 (Version 1)
Quarter: 2014Q2

REPORT INFORMATION
  Report Type: Spontaneous
  Country: DE (occurrence: None)
  Receive Date: 20140502
  Receipt Date: 20140502
  Transmission Date: 20141212
  Serious: Yes (Death)
  Sender: FDA-Public Use
  Company Number: 2014P1003591

PATIENT
  Age: 40 Year
  Sex: Female
  Weight: 47 kg

DRUGS (10)
  1. CITALOPRAM [Suspect]
  2. CAPTAN [Suspect]
  3. ACETAZOLAMIDE [Suspect]
  4. LEVETIRACETAM [Suspect]
  5. LACOSAMIDE [Suspect]
  6. AGOMELATIN [Suspect]
  7. LAMOTRIGINE [Suspect]
  8. CLOBAZAM [Suspect]
  9. LORAZEPAM [Suspect]
  10. CLONAZEPAM [Suspect]

REACTIONS (3)
  - Pulmonary oedema [None]
  - Completed suicide [None]
  - Poisoning [None]
